FAERS Safety Report 6816245-7 (Version None)
Quarter: 2010Q3

REPORT INFORMATION
  Report Type: 
  Country: None (occurrence: None)
  Receive Date: 20100702
  Receipt Date: 20100702
  Transmission Date: 20110219
  Serious: Yes (Life-Threatening)
  Sender: FDA-Public Use
  Company Number: None

PATIENT
  Sex: Male
  Weight: 90.7194 kg

DRUGS (1)
  1. TOPAMAX [Suspect]
     Indication: MIGRAINE PROPHYLAXIS
     Dosage: 50 MG ONLY SINGLE DOSE PO
     Route: 048
     Dates: start: 20050118, end: 20050120

REACTIONS (2)
  - DYSSTASIA [None]
  - MUSCLE DISORDER [None]
